FAERS Safety Report 8588703-9 (Version None)
Quarter: 2012Q3

REPORT INFORMATION
  Report Type: 
  Country: None (occurrence: None)
  Receive Date: 20120813
  Receipt Date: 20120810
  Transmission Date: 20120928
  Serious: Yes (Life-Threatening, Other)
  Sender: FDA-Public Use
  Company Number: PHHY2011CA88707

PATIENT
  Sex: Female

DRUGS (1)
  1. ZOLEDRONOC ACID [Suspect]
     Indication: OSTEOPOROSIS
     Dosage: 5 MG, UNK
     Route: 042
     Dates: start: 20111006

REACTIONS (12)
  - EYE DISORDER [None]
  - CONCOMITANT DISEASE PROGRESSION [None]
  - NIGHT SWEATS [None]
  - BONE PAIN [None]
  - PRURITUS [None]
  - FEELING ABNORMAL [None]
  - BACK PAIN [None]
  - BLOOD PRESSURE INCREASED [None]
  - LIMB DISCOMFORT [None]
  - SPINAL DISORDER [None]
  - MUSCULOSKELETAL DISCOMFORT [None]
  - VISION BLURRED [None]
